FAERS Safety Report 16107223 (Version 1)
Quarter: 2019Q1

REPORT INFORMATION
  Report Type: Spontaneous
  Country: US (occurrence: US)
  Receive Date: 20190322
  Receipt Date: 20190322
  Transmission Date: 20190418
  Serious: No
  Sender: FDA-Public Use
  Company Number: US-SA-2019SA076193

PATIENT

DRUGS (3)
  1. DUPIXENT [Suspect]
     Active Substance: DUPILUMAB
  2. LYRICA [Concomitant]
     Active Substance: PREGABALIN
     Dosage: 1 CAPSULE TWICE DAILY FOR 1 WEEK
     Dates: start: 20190129
  3. LYRICA [Concomitant]
     Active Substance: PREGABALIN
     Dosage: 2 CAPSULE TWICE DAILY

REACTIONS (1)
  - Rash [Unknown]
